FAERS Safety Report 23672749 (Version 6)
Quarter: 2024Q2

REPORT INFORMATION
  Report Type: Spontaneous
  Country: US (occurrence: US)
  Receive Date: 20240326
  Receipt Date: 20240612
  Transmission Date: 20240716
  Serious: No
  Sender: FDA-Public Use
  Company Number: US-PFIZER INC-202400064029

PATIENT
  Age: 29 Year
  Sex: Male
  Weight: 70.31 kg

DRUGS (1)
  1. GENOTROPIN [Suspect]
     Active Substance: SOMATROPIN
     Indication: Hyperpituitarism
     Dosage: DOSE: 1 MILLIGRAMS DAILY

REACTIONS (6)
  - Wrong technique in device usage process [Unknown]
  - Drug dose omission by device [Unknown]
  - Device information output issue [Unknown]
  - Device mechanical issue [Unknown]
  - Device delivery system issue [Unknown]
  - Off label use [Unknown]
